FAERS Safety Report 8781484 (Version 2)
Quarter: 2012Q4

REPORT INFORMATION
  Report Type: 
  Country: ES (occurrence: ES)
  Receive Date: 20120913
  Receipt Date: 20120913
  Transmission Date: 20130627
  Serious: Yes (Other)
  Sender: FDA-Public Use
  Company Number: PHHY2012ES067491

PATIENT
  Age: 65 Year
  Sex: Male

DRUGS (3)
  1. CLOZAPINE [Suspect]
     Indication: SCHIZOPHRENIA, PARANOID TYPE
     Dosage: 400 mg, daily
     Route: 048
  2. CLOZAPINE [Suspect]
     Dosage: 600 mg, daily
     Route: 048
  3. AMISULPRIDE [Suspect]

REACTIONS (3)
  - Pleurothotonus [Recovered/Resolved]
  - Posture abnormal [Recovered/Resolved]
  - Therapeutic response decreased [Unknown]
